FAERS Safety Report 5746659-8 (Version None)
Quarter: 2008Q2

REPORT INFORMATION
  Report Type: 
  Country: None (occurrence: None)
  Receive Date: 20080522
  Receipt Date: 20080513
  Transmission Date: 20081010
  Serious: Yes (Other)
  Sender: FDA-Public Use
  Company Number: US-JNJFOC-20080503885

PATIENT
  Sex: Male

DRUGS (3)
  1. IBUPROFEN [Suspect]
     Indication: HEADACHE
  2. HYDROCODONE BITARTRATE [Concomitant]
     Indication: PAIN
  3. MORPHINE PUMP [Concomitant]
     Indication: PAIN

REACTIONS (5)
  - BACK DISORDER [None]
  - FIBROMYALGIA [None]
  - HYPERTENSION [None]
  - PAIN [None]
  - PARAESTHESIA [None]
